FAERS Safety Report 9650975 (Version 2)
Quarter: 2013Q4

REPORT INFORMATION
  Report Type: Spontaneous
  Country: US (occurrence: US)
  Receive Date: 20131029
  Receipt Date: 20131029
  Transmission Date: 20140711
  Serious: No
  Sender: FDA-Public Use
  Company Number: US-PFIZER INC-2013299379

PATIENT
  Age: 63 Year
  Sex: Male
  Weight: 104.31 kg

DRUGS (4)
  1. VIAGRA [Suspect]
     Indication: ERECTILE DYSFUNCTION
     Dosage: 25 MG, AS NEEDED
  2. VIAGRA [Suspect]
     Dosage: 50 MG, AS NEEDED
  3. METOPROLOL [Concomitant]
     Indication: BLOOD PRESSURE
     Dosage: 20 MG, 2X/DAY
  4. DIOVAN [Concomitant]
     Indication: BLOOD PRESSURE
     Dosage: 80 MG, DAILY

REACTIONS (1)
  - Abdominal discomfort [Not Recovered/Not Resolved]
